FAERS Safety Report 5411929-X (Version None)
Quarter: 2007Q3

REPORT INFORMATION
  Report Type: 
  Country: None (occurrence: None)
  Receive Date: 20070813
  Receipt Date: 20070807
  Transmission Date: 20080115
  Serious: Yes (Hospitalization)
  Sender: FDA-Public Use
  Company Number: FR-ELI_LILLY_AND_COMPANY-FR200701005992

PATIENT
  Age: 80 Year
  Sex: Female

DRUGS (6)
  1. FORTEO [Suspect]
     Indication: OSTEOPOROSIS
     Dosage: 20 UG, DAILY (1/D)
     Route: 058
     Dates: start: 20051109
  2. CORTANCYL [Concomitant]
     Indication: TEMPORAL ARTERITIS
  3. LEVOTHYROXINE SODIUM [Concomitant]
     Indication: HYPOTHYROIDISM
  4. LORAZEPAM [Concomitant]
  5. NASONEX [Concomitant]
  6. FLIXOTIDE [Concomitant]

REACTIONS (1)
  - ASTHMA [None]
